FAERS Safety Report 18793402 (Version 1)
Quarter: 2021Q1

REPORT INFORMATION
  Report Type: Spontaneous
  Country: US (occurrence: US)
  Receive Date: 20210126
  Receipt Date: 20210126
  Transmission Date: 20210419
  Serious: Yes (Hospitalization)
  Sender: FDA-Public Use
  Company Number: None

PATIENT
  Sex: Female

DRUGS (11)
  1. LORAZEPAM. [Concomitant]
     Active Substance: LORAZEPAM
  2. MELATONIN [Concomitant]
     Active Substance: MELATONIN
  3. MAGNESIUM [Concomitant]
     Active Substance: MAGNESIUM
  4. VITAMIN D [Concomitant]
     Active Substance: VITAMIN D NOS
  5. CLARITIN [Concomitant]
     Active Substance: LORATADINE
  6. OLOPATADINE. [Concomitant]
     Active Substance: OLOPATADINE
  7. FOLIC ACID. [Concomitant]
     Active Substance: FOLIC ACID
  8. MULTIVITAMIN [Concomitant]
     Active Substance: VITAMINS
  9. DOXYCYCL HYC [Concomitant]
  10. PRESNISONE [Concomitant]
     Active Substance: PREDNISONE
  11. NEULASTA [Suspect]
     Active Substance: PEGFILGRASTIM
     Indication: CHRONIC MYELOID LEUKAEMIA
     Dosage: ?          OTHER FREQUENCY:24?72 HRS FOLLOWIN;?
     Route: 058
     Dates: start: 20201221

REACTIONS (1)
  - Hospitalisation [None]
